FAERS Safety Report 21803701 (Version 1)
Quarter: 2023Q1

REPORT INFORMATION
  Report Type: Spontaneous
  Country: CN (occurrence: CN)
  Receive Date: 20230102
  Receipt Date: 20230102
  Transmission Date: 20230418
  Serious: Yes (Hospitalization)
  Sender: FDA-Public Use
  Company Number: None

PATIENT
  Age: 66 Year
  Sex: Female
  Weight: 59.4 kg

DRUGS (3)
  1. NOVOLIN R [Suspect]
     Active Substance: INSULIN HUMAN
     Indication: Abdominal pain
     Dosage: 18 IU, QD, IV DRIP
     Route: 042
     Dates: start: 20221206
  2. POTASSIUM CHLORIDE [Suspect]
     Active Substance: POTASSIUM CHLORIDE
     Indication: Abdominal pain
     Dosage: 20 ML, QD, IV DRIP
     Route: 042
     Dates: start: 20221206
  3. DEXTROSE [Suspect]
     Active Substance: DEXTROSE
     Indication: Abdominal pain
     Dosage: 11%
     Dates: start: 20221206

REACTIONS (2)
  - Hyperhidrosis [Recovering/Resolving]
  - Off label use [Unknown]

NARRATIVE: CASE EVENT DATE: 20221206
